FAERS Safety Report 23474218 (Version 1)
Quarter: 2024Q1

REPORT INFORMATION
  Report Type: Report from Study
  Country: US (occurrence: US)
  Receive Date: 20240204
  Receipt Date: 20240204
  Transmission Date: 20240410
  Serious: Yes (Other)
  Sender: FDA-Public Use
  Company Number: US-EXELIXIS-CABO-22058950

PATIENT
  Age: 58 Year
  Sex: Female

DRUGS (1)
  1. CABOMETYX [Suspect]
     Active Substance: CABOZANTINIB S-MALATE
     Indication: Product used for unknown indication
     Dosage: 40 MG, QD
     Route: 048
     Dates: start: 20221129

REACTIONS (12)
  - Pulmonary embolism [Recovering/Resolving]
  - Gingival swelling [Recovering/Resolving]
  - Arthritis [Recovering/Resolving]
  - Eye swelling [Unknown]
  - Pain in jaw [Unknown]
  - Feeding disorder [Unknown]
  - Oral pain [Recovering/Resolving]
  - Hair colour changes [Unknown]
  - Glossodynia [Unknown]
  - Dyspepsia [Recovering/Resolving]
  - Dry mouth [Unknown]
  - Fatigue [Unknown]

NARRATIVE: CASE EVENT DATE: 20221201
